FAERS Safety Report 8480785 (Version 2)
Quarter: 2012Q4

REPORT INFORMATION
  Report Type: Report from Study
  Country: US (occurrence: US)
  Receive Date: 20120328
  Receipt Date: 20121115
  Transmission Date: 20130627
  Serious: Yes (Hospitalization)
  Sender: FDA-Public Use
  Company Number: US-UCBSA-053761

PATIENT
  Age: 54 Year
  Sex: Female
  Weight: 69 kg

DRUGS (20)
  1. CERTOLIZUMAB PEGOL [Suspect]
     Indication: PSORIATIC ARTHROPATHY
     Route: 058
     Dates: start: 20110318
  2. ASPIRIN [Concomitant]
     Indication: PROPHYLAXIS
     Route: 048
     Dates: start: 2007
  3. MVI [Concomitant]
     Indication: SUPPLEMENTATION THERAPY
     Dosage: 1
     Route: 048
     Dates: start: 2006
  4. FOLIC ACID [Concomitant]
     Indication: SUPPLEMENTATION THERAPY
     Route: 048
     Dates: start: 20101122
  5. METHOTREXATE [Concomitant]
     Indication: PSORIATIC ARTHROPATHY
     Dosage: 10 MG SUFFICIENT QUANTITY
     Route: 048
     Dates: start: 20101122
  6. RHINOCORT NS [Concomitant]
     Indication: RHINITIS ALLERGIC
     Dosage: 1 SPRAY
     Route: 045
     Dates: start: 2000
  7. SALINE NS [Concomitant]
     Indication: RHINITIS ALLERGIC
     Dosage: 1 SPRAY
     Route: 045
     Dates: start: 2006
  8. PERCOCET [Concomitant]
     Indication: PAIN
     Dosage: 1 TABLET
     Dates: start: 20120224, end: 20120310
  9. KLONIPIN [Concomitant]
     Indication: POST-TRAUMATIC STRESS DISORDER
     Dates: start: 20111130, end: 20120309
  10. KLONIPIN [Concomitant]
     Indication: DEPRESSION
     Dates: start: 20111130, end: 20120309
  11. SEROQUEL SR [Concomitant]
     Indication: DEPRESSION
     Dosage: ONCE NIGHTLY
     Dates: start: 20110418, end: 20120309
  12. SEROQUEL SR [Concomitant]
     Indication: POST-TRAUMATIC STRESS DISORDER
     Dosage: ONCE NIGHTLY
     Dates: start: 20110418, end: 20120309
  13. LIQUID TEARS [Concomitant]
     Indication: DRY EYE
     Dosage: 1 DROP
     Dates: start: 2010
  14. VISINE EYE DROP [Concomitant]
     Indication: DRY EYE
     Dosage: 1 DROP
     Dates: start: 2001
  15. PROZAC [Concomitant]
     Indication: POST-TRAUMATIC STRESS DISORDER
     Dates: start: 20110824
  16. PROZAC [Concomitant]
     Indication: DEPRESSION
     Dates: start: 20110824
  17. FLAX SEED GEL CAP [Concomitant]
     Indication: SUPPLEMENTATION THERAPY
     Dosage: 1 CAPSULE ONCE DAILY
     Dates: start: 20111003
  18. TYLENOL [Concomitant]
     Indication: PAIN
     Dosage: 2 CAPSULES
     Dates: start: 20110609
  19. STRESS TAB WITH C [Concomitant]
     Indication: MEDICAL DIET
     Dates: start: 20110722
  20. STRESS TAB WITH C [Concomitant]
     Indication: MEDICAL DIET
     Dates: start: 20110722

REACTIONS (1)
  - Psychotic disorder [Recovered/Resolved]
